FAERS Safety Report 5772383-1 (Version None)
Quarter: 2008Q2

REPORT INFORMATION
  Report Type: 
  Country: None (occurrence: None)
  Receive Date: 20080613
  Receipt Date: 20080610
  Transmission Date: 20081010
  Serious: Yes (Death)
  Sender: FDA-Public Use
  Company Number: JP-ASTRAZENECA-2008AP04095

PATIENT
  Age: 64 Year
  Sex: Female

DRUGS (1)
  1. ARIMIDEX TABLETS [Suspect]
     Indication: BREAST CANCER
     Route: 048
     Dates: start: 20050101, end: 20080101

REACTIONS (1)
  - HEPATIC FAILURE [None]
